FAERS Safety Report 7106416-7 (Version None)
Quarter: 2010Q4

REPORT INFORMATION
  Report Type: 
  Country: None (occurrence: None)
  Receive Date: 20101116
  Receipt Date: 20100727
  Transmission Date: 20110411
  Serious: No
  Sender: FDA-Public Use
  Company Number: US-PFIZER INC-2010094948

PATIENT
  Sex: Female
  Weight: 90.703 kg

DRUGS (7)
  1. TOVIAZ [Suspect]
     Indication: POLLAKIURIA
     Dosage: UNK
     Dates: start: 20100401, end: 20100501
  2. TOVIAZ [Suspect]
     Indication: URINARY INCONTINENCE
  3. DETROL LA [Suspect]
     Indication: POLLAKIURIA
     Dosage: 4 MG, 1X/DAY
     Route: 048
     Dates: start: 20100501
  4. DETROL LA [Suspect]
     Indication: URINARY INCONTINENCE
  5. SERTRALINE [Concomitant]
     Dosage: UNK
  6. IBANDRONATE SODIUM [Concomitant]
     Dosage: UNK
  7. WARFARIN [Concomitant]
     Dosage: UNK

REACTIONS (2)
  - DRUG INEFFECTIVE [None]
  - URINARY TRACT INFECTION [None]
